FAERS Safety Report 14266200 (Version 2)
Quarter: 2018Q1

REPORT INFORMATION
  Report Type: Spontaneous
  Country: US (occurrence: US)
  Receive Date: 20171210
  Receipt Date: 20180130
  Transmission Date: 20180508
  Serious: Yes (Hospitalization, Other)
  Sender: FDA-Public Use
  Company Number: US-NOVOPROD-575700

PATIENT
  Age: 62 Year
  Sex: Female
  Weight: 72.56 kg

DRUGS (1)
  1. LEVEMIR [Suspect]
     Active Substance: INSULIN DETEMIR
     Indication: TYPE 2 DIABETES MELLITUS
     Dosage: 60 U, BID
     Route: 058
     Dates: start: 20171030, end: 20171128

REACTIONS (5)
  - Muscle strain [Recovered/Resolved]
  - Drug hypersensitivity [Recovered/Resolved]
  - Hypoacusis [Recovered/Resolved]
  - Sinusitis [Recovered/Resolved]
  - Dysphonia [Recovered/Resolved]

NARRATIVE: CASE EVENT DATE: 2017
